FAERS Safety Report 12388448 (Version 1)
Quarter: 2016Q2

REPORT INFORMATION
  Report Type: Spontaneous
  Country: US (occurrence: US)
  Receive Date: 20160520
  Receipt Date: 20160520
  Transmission Date: 20160815
  Serious: Yes (Other)
  Sender: FDA-Public Use
  Company Number: GXBR2016US001868

PATIENT
  Age: 69 Year
  Sex: Male

DRUGS (1)
  1. DECITABINE. [Suspect]
     Active Substance: DECITABINE
     Indication: MYELODYSPLASTIC SYNDROME
     Dosage: UNK DF, UNK
     Route: 065
     Dates: start: 20150612

REACTIONS (2)
  - Cytopenia [Unknown]
  - Acute myeloid leukaemia [Unknown]
